FAERS Safety Report 6619706-9 (Version None)
Quarter: 2010Q1

REPORT INFORMATION
  Report Type: 
  Country: None (occurrence: None)
  Receive Date: 20100309
  Receipt Date: 20100223
  Transmission Date: 20100710
  Serious: Yes (Other)
  Sender: FDA-Public Use
  Company Number: PHHY2010GR10520

PATIENT
  Age: 70 Year
  Sex: Male

DRUGS (2)
  1. ACLASTA [Suspect]
     Indication: OSTEOPOROSIS
     Dosage: 1 INJECTION PER YEAR (MG UNSPESIFIED)
     Dates: start: 20100218
  2. ANTIHYPERTENSIVE DRUGS [Concomitant]

REACTIONS (7)
  - BLEPHARITIS [None]
  - BONE PAIN [None]
  - EYE INFLAMMATION [None]
  - EYE OEDEMA [None]
  - HAEMATOMA [None]
  - MYALGIA [None]
  - PYREXIA [None]
